FAERS Safety Report 7531052-8 (Version None)
Quarter: 2011Q2

REPORT INFORMATION
  Report Type: 
  Country: None (occurrence: None)
  Receive Date: 20110608
  Receipt Date: 20110603
  Transmission Date: 20111010
  Serious: No
  Sender: FDA-Public Use
  Company Number: US-TEVA-284925USA

PATIENT
  Sex: Female
  Weight: 54.48 kg

DRUGS (4)
  1. PROZAC [Concomitant]
     Indication: DEPRESSION
  2. ADDERALL 10 [Concomitant]
     Indication: PSYCHOMOTOR HYPERACTIVITY
  3. PLAN B ONE-STEP [Suspect]
     Indication: POST COITAL CONTRACEPTION
     Dosage: 1.5 MILLIGRAM;
     Route: 048
     Dates: start: 20110603, end: 20110603
  4. KLONOPIN [Concomitant]
     Indication: ANXIETY

REACTIONS (1)
  - VOMITING [None]
